FAERS Safety Report 5119324-8 (Version None)
Quarter: 2006Q3

REPORT INFORMATION
  Report Type: 
  Country: None (occurrence: None)
  Receive Date: 20060929
  Receipt Date: 20060830
  Transmission Date: 20061208
  Serious: Yes (Death, Hospitalization, Other)
  Sender: FDA-Public Use
  Company Number: 2006023234

PATIENT
  Age: 56 Year
  Sex: Male
  Weight: 79.3795 kg

DRUGS (1)
  1. BEXTRA [Suspect]
     Indication: BACK PAIN
     Dosage: 20 MG (20 MG, 1 IN 1 D)
     Dates: start: 20040301, end: 20040801

REACTIONS (3)
  - CARDIO-RESPIRATORY ARREST [None]
  - CORONARY ARTERY OCCLUSION [None]
  - MYOCARDIAL INFARCTION [None]
